FAERS Safety Report 23422092 (Version 1)
Quarter: 2024Q1

REPORT INFORMATION
  Report Type: Spontaneous
  Country: RU (occurrence: RU)
  Receive Date: 20240119
  Receipt Date: 20240119
  Transmission Date: 20240410
  Serious: Yes (Other)
  Sender: FDA-Public Use
  Company Number: RU-BAXTER-2024BAX010975

PATIENT
  Age: 20 Year
  Sex: Female
  Weight: 42 kg

DRUGS (6)
  1. MESNA [Suspect]
     Active Substance: MESNA
     Indication: Ewing^s sarcoma
     Dosage: 1916 MG
     Route: 065
     Dates: start: 20231113, end: 20231116
  2. ETOPOSIDE [Suspect]
     Active Substance: ETOPOSIDE
     Indication: Ewing^s sarcoma
     Dosage: 148 MG
     Route: 042
     Dates: start: 20231113, end: 20231116
  3. IFOSFAMIDE [Suspect]
     Active Substance: IFOSFAMIDE
     Indication: Ewing^s sarcoma
     Dosage: 2664 MG
     Route: 065
     Dates: start: 20231113, end: 20231116
  4. SODIUM CHLORIDE [Suspect]
     Active Substance: SODIUM CHLORIDE
     Indication: Ewing^s sarcoma
     Dosage: UNK
     Route: 042
     Dates: start: 20231113
  5. DEXAMETHASONE [Suspect]
     Active Substance: DEXAMETHASONE
     Indication: Ewing^s sarcoma
     Dosage: 8 MG, FEREIN
     Route: 065
     Dates: start: 20231113
  6. ONDANSETRON HYDROCHLORIDE [Suspect]
     Active Substance: ONDANSETRON HYDROCHLORIDE
     Indication: Ewing^s sarcoma
     Dosage: 16 MG
     Route: 042
     Dates: start: 20231113

REACTIONS (1)
  - Neutropenia [Recovering/Resolving]

NARRATIVE: CASE EVENT DATE: 20231114
